FAERS Safety Report 24215240 (Version 2)
Quarter: 2024Q3

REPORT INFORMATION
  Report Type: Spontaneous
  Country: US (occurrence: US)
  Receive Date: 20240816
  Receipt Date: 20240826
  Transmission Date: 20241016
  Serious: Yes (Hospitalization)
  Sender: ELI LILLY AND CO
  Company Number: US-ELI_LILLY_AND_COMPANY-US202408008156

PATIENT
  Age: 9 Year
  Sex: Male
  Weight: 40.8 kg

DRUGS (2)
  1. TALTZ [Suspect]
     Active Substance: IXEKIZUMAB
     Indication: Psoriasis
     Dosage: 80 MG, MONTHLY (1/M)
     Route: 030
  2. TALTZ [Suspect]
     Active Substance: IXEKIZUMAB
     Dosage: 80 MG, MONTHLY (1/M)
     Route: 030
     Dates: start: 20240814

REACTIONS (10)
  - Viral infection [Recovered/Resolved]
  - Rash [Recovered/Resolved]
  - Headache [Recovered/Resolved]
  - Dehydration [Recovered/Resolved]
  - White blood cell count increased [Recovered/Resolved]
  - Blood potassium decreased [Recovered/Resolved]
  - Neutrophil count increased [Recovered/Resolved]
  - Alanine aminotransferase increased [Recovered/Resolved]
  - Incorrect route of product administration [Unknown]
  - Nausea [Recovered/Resolved]

NARRATIVE: CASE EVENT DATE: 20240702
